FAERS Safety Report 26034815 (Version 3)
Quarter: 2025Q4

REPORT INFORMATION
  Report Type: Spontaneous
  Country: EU (occurrence: EU)
  Receive Date: 20251112
  Receipt Date: 20251124
  Transmission Date: 20260118
  Serious: Yes (Disabling, Other)
  Sender: ORGANON
  Company Number: EU-CHEPLA-2025011931

PATIENT
  Age: 37 Year
  Sex: Female

DRUGS (13)
  1. BETAMETHASONE DIPROPIONATE\SALICYLIC ACID [Suspect]
     Active Substance: BETAMETHASONE DIPROPIONATE\SALICYLIC ACID
     Indication: Dermatitis contact
     Dosage: UNK
  2. BETAMETHASONE DIPROPIONATE\SALICYLIC ACID [Suspect]
     Active Substance: BETAMETHASONE DIPROPIONATE\SALICYLIC ACID
     Dosage: UNK
  3. BETAMETHASONE DIPROPIONATE\SALICYLIC ACID [Suspect]
     Active Substance: BETAMETHASONE DIPROPIONATE\SALICYLIC ACID
     Dosage: UNK
     Route: 065
  4. DIPROSONE [Suspect]
     Active Substance: BETAMETHASONE DIPROPIONATE
     Indication: Dermatitis contact
     Dosage: UNK
     Dates: start: 2009, end: 2016
  5. DIPROSONE [Suspect]
     Active Substance: BETAMETHASONE DIPROPIONATE
     Indication: Eczema
     Dosage: RENEWED
  6. DIPROSONE [Suspect]
     Active Substance: BETAMETHASONE DIPROPIONATE
     Dosage: AGAIN PRESCRIBED
  7. PREDNISOLONE METASULFOBENZOATE SODIUM [Suspect]
     Active Substance: PREDNISOLONE SODIUM METAZOATE
     Indication: Product used for unknown indication
     Dosage: UNK
  8. LOCOID [Suspect]
     Active Substance: HYDROCORTISONE BUTYRATE
     Indication: Product used for unknown indication
     Dosage: UNK
  9. HYDROCORTISONE [Suspect]
     Active Substance: HYDROCORTISONE
     Indication: Product used for unknown indication
     Dosage: 2 DF, QD
     Dates: start: 20171120
  10. HYDROCORTISONE [Suspect]
     Active Substance: HYDROCORTISONE
     Dosage: DOUBLED TO 4 TABLETS PER DAY
     Dates: start: 20171219
  11. NERISONE [Suspect]
     Active Substance: DIFLUCORTOLONE VALERATE
     Indication: Dermatitis contact
     Dosage: UNK
  12. PREDNISOLONE [Suspect]
     Active Substance: PREDNISOLONE
     Indication: Dermatitis contact
     Dosage: UNK
  13. XYZAL [Concomitant]
     Active Substance: LEVOCETIRIZINE DIHYDROCHLORIDE
     Indication: Antiallergic therapy
     Dosage: UNK

REACTIONS (18)
  - Disability [Not Recovered/Not Resolved]
  - Suicidal ideation [Not Recovered/Not Resolved]
  - Insomnia [Not Recovered/Not Resolved]
  - Fatigue [Unknown]
  - Loss of personal independence in daily activities [Unknown]
  - Emotional distress [Unknown]
  - Depression [Unknown]
  - Condition aggravated [Unknown]
  - Drug ineffective [Unknown]
  - Alopecia [Unknown]
  - Loss of employment [Not Recovered/Not Resolved]
  - Depression [Not Recovered/Not Resolved]
  - Skin lesion [Not Recovered/Not Resolved]
  - Skin plaque [Not Recovered/Not Resolved]
  - Dry skin [Not Recovered/Not Resolved]
  - Hyperhidrosis [Not Recovered/Not Resolved]
  - Night sweats [Not Recovered/Not Resolved]
  - Product use in unapproved indication [Unknown]
